APPROVED DRUG PRODUCT: PEG 3350 AND ELECTROLYTES
Active Ingredient: POLYETHYLENE GLYCOL 3350; POTASSIUM CHLORIDE; SODIUM BICARBONATE; SODIUM CHLORIDE; SODIUM SULFATE ANHYDROUS
Strength: 236GM/BOT;2.97GM/BOT;6.74GM/BOT;5.86GM/BOT;22.74GM/BOT
Dosage Form/Route: FOR SOLUTION;ORAL
Application: A090231 | Product #001 | TE Code: AA
Applicant: NOVEL LABORATORIES INC
Approved: Jun 1, 2009 | RLD: No | RS: No | Type: RX